FAERS Safety Report 10188225 (Version 1)
Quarter: 2014Q2

REPORT INFORMATION
  Report Type: Spontaneous
  Country: IT (occurrence: IT)
  Receive Date: 20140522
  Receipt Date: 20140522
  Transmission Date: 20141212
  Serious: Yes (Hospitalization)
  Sender: FDA-Public Use
  Company Number: IT-TEVA-481416ISR

PATIENT
  Age: 34 Year
  Sex: Male

DRUGS (4)
  1. SERTRALINE [Suspect]
     Indication: INTENTIONAL SELF-INJURY
     Dosage: 500 MG TOTAL
     Route: 048
     Dates: start: 20140416, end: 20140416
  2. LEXOTAN - 2,5MG/ML GOCCE ORALI, SOLUZIONE [Suspect]
     Indication: INTENTIONAL SELF-INJURY
     Dosage: 60 ML TOTAL,SOLUTION
     Route: 048
     Dates: start: 20140416, end: 20140416
  3. DEPAKIN CHRONO - 500 MG COMPRESSE A RILASCIO PROLUNGATO - BB FARMA SRL [Suspect]
     Indication: INTENTIONAL SELF-INJURY
     Dosage: 5 DF TOTAL
     Route: 048
     Dates: start: 20140416, end: 20140416
  4. SEROQUEL - 25 MG COMPRESSE RIVESTITE CON FILM [Suspect]
     Indication: INTENTIONAL SELF-INJURY
     Dosage: 5 DF TOTAL
     Route: 048
     Dates: start: 20140416, end: 20140416

REACTIONS (7)
  - Bradykinesia [Recovering/Resolving]
  - Hypotension [Recovering/Resolving]
  - Intentional self-injury [Recovering/Resolving]
  - Rhabdomyolysis [Recovering/Resolving]
  - Bradyphrenia [Recovering/Resolving]
  - Sopor [Recovering/Resolving]
  - Drug abuse [Unknown]
